FAERS Safety Report 21327070 (Version 1)
Quarter: 2022Q3

REPORT INFORMATION
  Report Type: Spontaneous
  Country: US (occurrence: US)
  Receive Date: 20220913
  Receipt Date: 20220913
  Transmission Date: 20221026
  Serious: Yes (Death)
  Sender: FDA-Public Use
  Company Number: US-JNJFOC-20210851059

PATIENT
  Age: 77 Year
  Sex: Male

DRUGS (1)
  1. BALVERSA [Suspect]
     Active Substance: ERDAFITINIB
     Indication: Product used for unknown indication
     Dosage: THE LAST KNOWN DATE WHEN THE DRUG WAS ADMINISTERED: 12-MAY-2021
     Route: 048

REACTIONS (1)
  - Death [Fatal]
